FAERS Safety Report 10012567 (Version 2)
Quarter: 2014Q2

REPORT INFORMATION
  Report Type: Spontaneous
  Country: PL (occurrence: PL)
  Receive Date: 20140314
  Receipt Date: 20140512
  Transmission Date: 20141212
  Serious: Yes (Life-Threatening, Hospitalization)
  Sender: FDA-Public Use
  Company Number: PL-ABBVIE-14K-129-1211870-00

PATIENT
  Age: 51 Year
  Sex: Male
  Weight: 74 kg

DRUGS (6)
  1. SEVORANE [Suspect]
     Indication: GENERAL ANAESTHESIA
     Dosage: 2.5 VOL%
     Dates: start: 20131022, end: 20131022
  2. TARFAZOLIN [Suspect]
     Indication: PROPHYLAXIS
     Dosage: 1.0
     Route: 042
     Dates: start: 20131022, end: 20131022
  3. PLOFED [Suspect]
     Indication: GENERAL ANAESTHESIA
     Route: 042
     Dates: start: 20131022, end: 20131022
  4. CISATRACURIUM ACTAVIS [Suspect]
     Indication: GENERAL ANAESTHESIA
     Route: 042
     Dates: start: 20131022, end: 20131022
  5. FENTANYL [Concomitant]
     Indication: PREMEDICATION
     Route: 042
     Dates: start: 20131022, end: 20131022
  6. DORMICUM [Concomitant]
     Indication: PREMEDICATION
     Route: 048
     Dates: start: 20131021, end: 20131022

REACTIONS (5)
  - Coronary artery disease [Unknown]
  - Ventricular fibrillation [Recovering/Resolving]
  - Cardiac arrest [Recovering/Resolving]
  - Wheezing [Recovering/Resolving]
  - Rash [Recovering/Resolving]
